FAERS Safety Report 6284776-7 (Version None)
Quarter: 2009Q3

REPORT INFORMATION
  Report Type: 
  Country: None (occurrence: None)
  Receive Date: 20090727
  Receipt Date: 20090721
  Transmission Date: 20100115
  Serious: Yes (Death)
  Sender: FDA-Public Use
  Company Number: PHHY2009JP25180

PATIENT
  Age: 84 Year
  Sex: Female

DRUGS (2)
  1. DIOVAN HCT [Suspect]
     Indication: HYPERTENSION
     Dosage: 1 DF DAILY
     Route: 048
     Dates: start: 20090603, end: 20090612
  2. DIOVAN [Suspect]
     Indication: HYPERTENSION
     Dosage: UNK
     Route: 048
     Dates: start: 20090613

REACTIONS (4)
  - CHRONIC RESPIRATORY FAILURE [None]
  - DIZZINESS [None]
  - LUNG NEOPLASM MALIGNANT [None]
  - PNEUMONIA [None]
